FAERS Safety Report 20801371 (Version 1)
Quarter: 2022Q2

REPORT INFORMATION
  Report Type: Spontaneous
  Country: CN (occurrence: CN)
  Receive Date: 20220509
  Receipt Date: 20220509
  Transmission Date: 20220721
  Serious: Yes (Hospitalization, Disabling, Other)
  Sender: FDA-Public Use
  Company Number: CN-SA-SAC20220502001643

PATIENT
  Age: 77 Year
  Sex: Male
  Weight: 57 kg

DRUGS (8)
  1. ZOLPIDEM TARTRATE [Suspect]
     Active Substance: ZOLPIDEM TARTRATE
     Indication: Pneumonia bacterial
     Dosage: 5MG, QD
     Route: 048
     Dates: start: 20220409, end: 20220412
  2. ZOLPIDEM TARTRATE [Suspect]
     Active Substance: ZOLPIDEM TARTRATE
     Indication: Cardiac failure acute
  3. ZOLPIDEM TARTRATE [Suspect]
     Active Substance: ZOLPIDEM TARTRATE
     Indication: Cardiac valve disease
  4. DIETARY SUPPLEMENT [Suspect]
     Active Substance: DIETARY SUPPLEMENT
     Indication: Pneumonia bacterial
     Dosage: 1,2G, TID
     Route: 048
     Dates: start: 20220407, end: 20220411
  5. ALLOPURINOL [Suspect]
     Active Substance: ALLOPURINOL
     Indication: Blood uric acid decreased
     Dosage: 0.05G, QD
     Route: 048
     Dates: start: 20220402, end: 20220412
  6. HERBALS [Suspect]
     Active Substance: HERBALS
     Indication: Pneumonia bacterial
     Route: 048
     Dates: start: 20220408, end: 20220411
  7. CEFTRIAXONE SODIUM [Suspect]
     Active Substance: CEFTRIAXONE SODIUM
     Indication: Pneumonia bacterial
     Route: 041
     Dates: start: 20220402, end: 20220411
  8. SODIUM CHLORIDE [Concomitant]
     Active Substance: SODIUM CHLORIDE
     Indication: Adjuvant therapy
     Route: 041
     Dates: start: 20220402, end: 20220411

REACTIONS (5)
  - Hepatitis fulminant [Unknown]
  - Hepatic failure [Unknown]
  - Alanine aminotransferase increased [Unknown]
  - Aspartate aminotransferase increased [Unknown]
  - Blood bilirubin increased [Unknown]
